FAERS Safety Report 19483068 (Version 4)
Quarter: 2022Q1

REPORT INFORMATION
  Report Type: Spontaneous
  Country: JP (occurrence: JP)
  Receive Date: 20210701
  Receipt Date: 20220117
  Transmission Date: 20220423
  Serious: Yes (Death, Life-Threatening, Hospitalization, Other)
  Sender: FDA-Public Use
  Company Number: JP-BRISTOL-MYERS SQUIBB COMPANY-BMS-2021-063077

PATIENT
  Age: 45 Year
  Sex: Male
  Weight: 65.1 kg

DRUGS (7)
  1. OPDIVO [Suspect]
     Active Substance: NIVOLUMAB
     Indication: Non-small cell lung cancer recurrent
     Dosage: UNK
     Route: 041
     Dates: start: 20210331, end: 20210609
  2. CARBOPLATIN [Suspect]
     Active Substance: CARBOPLATIN
     Indication: Product used for unknown indication
     Dosage: UNK
     Route: 065
     Dates: start: 201912
  3. PACLITAXEL [Suspect]
     Active Substance: PACLITAXEL
     Indication: Product used for unknown indication
     Dosage: UNK
     Route: 065
     Dates: start: 201912
  4. ORADOL [DOMIPHEN BROMIDE] [Concomitant]
     Indication: Product used for unknown indication
     Dosage: 0.5 MILLIGRAM
     Route: 048
  5. PREDNISOLONE [Concomitant]
     Active Substance: PREDNISOLONE
     Indication: Product used for unknown indication
     Dosage: 20 MILLIGRAM
     Route: 065
     Dates: start: 20210217
  6. PREDNISOLONE [Concomitant]
     Active Substance: PREDNISOLONE
     Dosage: 10 MILLIGRAM
     Route: 065
     Dates: start: 20210331
  7. PREDNISOLONE [Concomitant]
     Active Substance: PREDNISOLONE
     Dosage: 5 MILLIGRAM
     Route: 065
     Dates: start: 20210428

REACTIONS (5)
  - Acquired tracheo-oesophageal fistula [Fatal]
  - Malignant neoplasm progression [Fatal]
  - Pneumonia [Unknown]
  - Abdominal pain [Unknown]
  - Pyrexia [Unknown]

NARRATIVE: CASE EVENT DATE: 20210614
